FAERS Safety Report 6700386-9 (Version None)
Quarter: 2010Q2

REPORT INFORMATION
  Report Type: 
  Country: None (occurrence: None)
  Receive Date: 20100428
  Receipt Date: 20100419
  Transmission Date: 20101027
  Serious: Yes (Other)
  Sender: FDA-Public Use
  Company Number: JP-ROCHE-698577

PATIENT
  Age: 43 Year
  Sex: Female

DRUGS (4)
  1. ALL-TRANS-RETINOIC ACID [Suspect]
     Dosage: LOWERED DOSAGE
     Route: 065
  2. ALL-TRANS-RETINOIC ACID [Suspect]
     Route: 065
     Dates: end: 20080701
  3. CYTARABINE [Concomitant]
     Dates: end: 20080701
  4. IDARUBICIN HCL [Concomitant]
     Dates: end: 20080701

REACTIONS (3)
  - ACUTE PROMYELOCYTIC LEUKAEMIA [None]
  - BACILLUS INFECTION [None]
  - RETINOIC ACID SYNDROME [None]
